FAERS Safety Report 10402168 (Version 1)
Quarter: 2014Q1

REPORT INFORMATION
  Report Type: Spontaneous
  Country: US (occurrence: None)
  Receive Date: 20130815
  Receipt Date: 20130815
  Transmission Date: 20141002
  Serious: Yes (Hospitalization, Other)
  Sender: FDA-Public Use
  Company Number: ADR-2009-6076

PATIENT
  Sex: Male

DRUGS (2)
  1. LIORESAL INTRATHECAL (BACLOFEN INJECTION) [Suspect]
     Dosage: 540.1 MCG,
     Route: 037
  2. LIORESAL INTRATHECAL (BACLOFEN INJECTION) [Suspect]
     Indication: CEREBRAL PALSY
     Dosage: 540.1 MCG,
     Route: 037

REACTIONS (3)
  - Muscle rigidity [None]
  - Pain [None]
  - Muscle spasticity [None]
